FAERS Safety Report 10891305 (Version 22)
Quarter: 2018Q2

REPORT INFORMATION
  Report Type: Spontaneous
  Country: US (occurrence: US)
  Receive Date: 20150306
  Receipt Date: 20180629
  Transmission Date: 20180711
  Serious: Yes (Other)
  Sender: FDA-Public Use
  Company Number: US-009507513-1502USA012068

PATIENT
  Sex: Female
  Weight: 87.98 kg

DRUGS (2)
  1. OS-CAL (CALCIUM (UNSPECIFIED) (+) VITAMIN D (UNSPECIFIED)) [Concomitant]
     Indication: CALCIUM DEFICIENCY
     Dosage: 200 MG/500 MG, BID
     Route: 048
  2. IMPLANON [Suspect]
     Active Substance: ETONOGESTREL
     Indication: CONTRACEPTION
     Dosage: 68 MG, 1 ROD EVERY 3 YEARS, RIGHT ARM
     Route: 059
     Dates: start: 20110713, end: 20180605

REACTIONS (10)
  - Device difficult to use [Recovered/Resolved]
  - Complication of device removal [Recovered/Resolved]
  - Medical device removal [Recovered/Resolved]
  - Incorrect drug administration duration [Unknown]
  - Device difficult to use [Recovered/Resolved]
  - Amenorrhoea [Unknown]
  - Weight increased [Unknown]
  - Complication associated with device [Recovered/Resolved]
  - General anaesthesia [Recovered/Resolved]
  - Infertility female [Unknown]

NARRATIVE: CASE EVENT DATE: 2011
